FAERS Safety Report 11725741 (Version 1)
Quarter: 2015Q4

REPORT INFORMATION
  Report Type: Report from Study
  Country: CO (occurrence: CO)
  Receive Date: 20151111
  Receipt Date: 20151111
  Transmission Date: 20160304
  Serious: Yes (Hospitalization)
  Sender: FDA-Public Use
  Company Number: CO-ROCHE-1659610

PATIENT
  Sex: Female

DRUGS (1)
  1. BEVACIZUMAB [Suspect]
     Active Substance: BEVACIZUMAB
     Indication: OVARIAN CANCER
     Route: 042
     Dates: start: 20150901

REACTIONS (5)
  - Hypertension [Recovered/Resolved with Sequelae]
  - Mucosal inflammation [Recovered/Resolved]
  - Dyslipidaemia [Recovered/Resolved with Sequelae]
  - Urinary tract infection [Recovered/Resolved]
  - Angina pectoris [Recovered/Resolved]
